FAERS Safety Report 8250883-2 (Version None)
Quarter: 2012Q1

REPORT INFORMATION
  Report Type: 
  Country: None (occurrence: None)
  Receive Date: 20120328
  Receipt Date: 20120314
  Transmission Date: 20120608
  Serious: Yes (Other)
  Sender: FDA-Public Use
  Company Number: 2012MA003008

PATIENT
  Age: 55 Year
  Sex: Female

DRUGS (3)
  1. CITALOPRAM HYDROBROMIDE [Suspect]
     Indication: DEPRESSION
     Dosage: PO
     Route: 048
  2. XANAX [Concomitant]
  3. KVENTIAX [Concomitant]

REACTIONS (10)
  - VISUAL IMPAIRMENT [None]
  - DRUG WITHDRAWAL SYNDROME [None]
  - PARAESTHESIA ORAL [None]
  - OPTIC NEURITIS [None]
  - VITREOUS FLOATERS [None]
  - LENTICULAR OPACITIES [None]
  - HYALOSIS ASTEROID [None]
  - RETINAL DISORDER [None]
  - FATIGUE [None]
  - OEDEMA PERIPHERAL [None]
